FAERS Safety Report 9353046 (Version 1)
Quarter: 2013Q2

REPORT INFORMATION
  Report Type: Spontaneous
  Country: US (occurrence: US)
  Receive Date: 20130618
  Receipt Date: 20130618
  Transmission Date: 20140414
  Serious: Yes (Hospitalization, Other)
  Sender: FDA-Public Use
  Company Number: US-JNJFOC-20100806899

PATIENT
  Age: 50 Year
  Sex: Male

DRUGS (3)
  1. LEVAQUIN [Suspect]
     Indication: CELLULITIS
     Route: 048
     Dates: start: 200601, end: 200612
  2. LEVAQUIN [Suspect]
     Indication: INFECTION
     Route: 048
     Dates: start: 200601, end: 200612
  3. LEVAQUIN [Suspect]
     Indication: INFECTION
     Route: 042

REACTIONS (5)
  - Tendon rupture [Unknown]
  - Epicondylitis [Unknown]
  - Infection [Unknown]
  - Muscle strain [Unknown]
  - Back pain [Unknown]
